FAERS Safety Report 23356437 (Version 2)
Quarter: 2024Q1

REPORT INFORMATION
  Report Type: Spontaneous
  Country: GB (occurrence: GB)
  Receive Date: 20240102
  Receipt Date: 20240125
  Transmission Date: 20240409
  Serious: Yes (Other)
  Sender: FDA-Public Use
  Company Number: GB-MHRA-TPP39696913C8332403YC1703068160590

PATIENT
  Age: 27 Year
  Sex: Female
  Weight: 59 kg

DRUGS (4)
  1. SERTRALINE [Suspect]
     Active Substance: SERTRALINE HYDROCHLORIDE
     Indication: Ill-defined disorder
     Dosage: 0.5 DOSAGE FORM, ONCE A DAY (INCREASE TO ONE DAILY AFTER)
     Route: 065
     Dates: start: 20231208
  2. SERTRALINE [Suspect]
     Active Substance: SERTRALINE HYDROCHLORIDE
     Indication: Ill-defined disorder
     Dosage: UNK
     Route: 065
     Dates: start: 20231220
  3. MIRTAZAPINE [Concomitant]
     Active Substance: MIRTAZAPINE
     Indication: Ill-defined disorder
     Dosage: 1 DOSAGE FORM, ONCE A DAY (TAKE ONE TABLET EVERY NIGHT )
     Route: 065
     Dates: start: 20231206
  4. ZOPICLONE [Concomitant]
     Active Substance: ZOPICLONE
     Indication: Ill-defined disorder
     Dosage: UNK (ONE OR TWO TO BE TAKEN AT NIGHT AS REQUIRED, MA...)
     Route: 065
     Dates: start: 20231023

REACTIONS (3)
  - Mania [Recovered/Resolved]
  - Abnormal behaviour [Unknown]
  - Euphoric mood [Unknown]

NARRATIVE: CASE EVENT DATE: 20231220
